FAERS Safety Report 8452678-3 (Version None)
Quarter: 2012Q2

REPORT INFORMATION
  Report Type: 
  Country: None (occurrence: None)
  Receive Date: 20120620
  Receipt Date: 20120423
  Transmission Date: 20120825
  Serious: No
  Sender: FDA-Public Use
  Company Number: US-VERTEX PHARMACEUTICALS INC.-AE-2012-005819

PATIENT
  Sex: Female
  Weight: 81.72 kg

DRUGS (7)
  1. TRUVADA [Concomitant]
     Route: 048
  2. PEGASYS [Concomitant]
     Indication: HEPATITIS C
     Route: 058
     Dates: start: 20120420
  3. RIBAVIRIN [Concomitant]
     Indication: HEPATITIS C
     Route: 048
     Dates: start: 20120421
  4. INCIVEK [Suspect]
     Indication: HEPATITIS C
     Route: 048
     Dates: start: 20120421
  5. REYATAZ [Concomitant]
     Indication: HIV INFECTION
     Route: 048
  6. TRUVADA [Concomitant]
     Indication: HIV INFECTION
     Route: 048
  7. NORVIR [Concomitant]
     Indication: HIV INFECTION
     Route: 048

REACTIONS (3)
  - BURNING SENSATION [None]
  - DRUG DOSE OMISSION [None]
  - OFF LABEL USE [None]
